FAERS Safety Report 18006799 (Version 3)
Quarter: 2020Q3

REPORT INFORMATION
  Report Type: Report from Study
  Country: IL (occurrence: IL)
  Receive Date: 20200710
  Receipt Date: 20200819
  Transmission Date: 20201103
  Serious: Yes (Hospitalization)
  Sender: FDA-Public Use
  Company Number: IL-KARYOPHARM-2020KPT000703

PATIENT
  Age: 56 Year
  Sex: Male
  Weight: 78 kg

DRUGS (16)
  1. OLANZAPINE ACCORD [Concomitant]
     Active Substance: OLANZAPINE
     Indication: PROPHYLAXIS
     Dosage: 2.5 MG, QD
     Route: 048
     Dates: start: 20200514
  2. SELINEXOR [Suspect]
     Active Substance: SELINEXOR
     Dosage: 80 MG, WEEKLY
     Route: 048
     Dates: start: 20200513, end: 20200617
  3. SODIUM CHLORIDE 0.9% [Concomitant]
     Active Substance: SODIUM CHLORIDE
     Indication: HYPONATRAEMIA
     Dosage: 500 ML, SINGLE
     Route: 042
     Dates: start: 20200603, end: 20200603
  4. ONDANSETRON [Concomitant]
     Active Substance: ONDANSETRON
     Indication: NAUSEA
     Dosage: 8 MG, PRN
     Route: 048
     Dates: start: 20200421
  5. METRONIDAZOLE. [Concomitant]
     Active Substance: METRONIDAZOLE
     Indication: INFECTION
     Dosage: 500 MG, BID
     Route: 061
     Dates: start: 20200503
  6. ENSURE [Concomitant]
     Active Substance: AMINO ACIDS\DEXTROSE\ELECTROLYTES NOS\SOYBEAN OIL\VITAMINS
     Indication: WEIGHT DECREASED
     Dosage: 1 UNK, PRN
     Route: 048
     Dates: start: 2019
  7. SELINEXOR [Suspect]
     Active Substance: SELINEXOR
     Indication: COLORECTAL CANCER
     Dosage: 100 MG, WEEKLY
     Route: 048
     Dates: start: 20200419, end: 20200513
  8. OPTALGIN [Concomitant]
     Active Substance: METAMIZOLE
     Indication: TUMOUR PAIN
     Dosage: 25 GTT DROPS, PRN
     Route: 048
     Dates: start: 202003
  9. ONDANSETRON [Concomitant]
     Active Substance: ONDANSETRON
     Dosage: 2 ML
     Route: 048
     Dates: start: 20200422
  10. ACETAMINOPHENE [Concomitant]
     Active Substance: ACETAMINOPHEN
     Indication: PYREXIA
     Dosage: 500 MG, PRN
     Route: 048
     Dates: start: 20200528, end: 20200530
  11. CANNABIS [Concomitant]
     Active Substance: CANNABIS SATIVA SUBSP. INDICA TOP
     Indication: TUMOUR PAIN
     Dosage: 3 GTT DROPS, PRN
     Route: 048
     Dates: start: 202003
  12. PEMBROLIZUMAB. [Suspect]
     Active Substance: PEMBROLIZUMAB
     Indication: COLORECTAL CANCER
     Dosage: 200 MG, 1X/3 WEEKS
     Route: 042
     Dates: start: 20200513, end: 20200603
  13. AUGMENTIN [Concomitant]
     Active Substance: AMOXICILLIN\CLAVULANATE POTASSIUM
     Indication: INFECTION
     Dosage: 875 MG/125 MG, BID
     Route: 048
     Dates: start: 20200531, end: 20200606
  14. OXYCODONE/NALOXONE SANDOZ [Concomitant]
     Active Substance: NALOXONE HYDROCHLORIDE\OXYCODONE HYDROCHLORIDE
     Indication: TUMOUR PAIN
     Dosage: 20 MG/10 MG, BID
     Route: 048
     Dates: start: 20200610
  15. LAEVOLAC [Concomitant]
     Active Substance: LACTULOSE
     Indication: WEIGHT DECREASED
     Dosage: 50 ML, PRN
     Route: 048
     Dates: start: 20200429
  16. PERCOCET [Concomitant]
     Active Substance: ACETAMINOPHEN\OXYCODONE HYDROCHLORIDE
     Indication: TUMOUR PAIN
     Dosage: 5 MG/325 MG, PRN
     Route: 048
     Dates: start: 20200501

REACTIONS (1)
  - Hyponatraemia [Not Recovered/Not Resolved]

NARRATIVE: CASE EVENT DATE: 20200623
